FAERS Safety Report 8793918 (Version 1)
Quarter: 2012Q4

REPORT INFORMATION
  Report Type: 
  Country: US (occurrence: US)
  Receive Date: 20120918
  Receipt Date: 20120918
  Transmission Date: 20130627
  Serious: Yes (Other)
  Sender: FDA-Public Use
  Company Number: US-009507513-1209USA005742

PATIENT

DRUGS (5)
  1. SAPHRIS [Suspect]
     Dosage: 10 mg, qd
     Route: 048
  2. BENZTROPINE MESYLATE [Concomitant]
  3. HALDOL [Concomitant]
  4. METHYLPHENIDATE [Concomitant]
  5. PAROXETINE [Concomitant]

REACTIONS (5)
  - Condition aggravated [Unknown]
  - Gait disturbance [Unknown]
  - Depression [Unknown]
  - Psychotic disorder [Unknown]
  - Speech disorder [Unknown]
